FAERS Safety Report 22855606 (Version 2)
Quarter: 2023Q4

REPORT INFORMATION
  Report Type: Report from Study
  Country: CA (occurrence: CA)
  Receive Date: 20230823
  Receipt Date: 20231118
  Transmission Date: 20240110
  Serious: Yes (Hospitalization, Other)
  Sender: FDA-Public Use
  Company Number: CA-002147023-NVSC2023CA072272

PATIENT
  Age: 83 Year
  Sex: Male

DRUGS (3)
  1. ELTROMBOPAG OLAMINE [Suspect]
     Active Substance: ELTROMBOPAG OLAMINE
     Indication: Immune thrombocytopenia
     Dosage: 50 MG, QD
     Route: 048
     Dates: start: 20230225
  2. ELTROMBOPAG OLAMINE [Suspect]
     Active Substance: ELTROMBOPAG OLAMINE
     Dosage: 25 MG, Q48H
     Route: 065
     Dates: start: 20230818
  3. FELOXIN [Concomitant]
     Indication: Cardiac disorder
     Dosage: UNK
     Route: 065

REACTIONS (16)
  - COVID-19 [Unknown]
  - Delirium [Unknown]
  - Platelet count increased [Unknown]
  - Vision blurred [Unknown]
  - Eye disorder [Unknown]
  - Dry eye [Unknown]
  - Headache [Unknown]
  - Fatigue [Unknown]
  - Contusion [Unknown]
  - Pain in extremity [Unknown]
  - Platelet count decreased [Unknown]
  - Eating disorder [Unknown]
  - Asthenia [Unknown]
  - Dyspnoea [Unknown]
  - Weight increased [Unknown]
  - Appetite disorder [Unknown]

NARRATIVE: CASE EVENT DATE: 20230723
